FAERS Safety Report 24955112 (Version 1)
Quarter: 2025Q1

REPORT INFORMATION
  Report Type: Spontaneous
  Country: US (occurrence: US)
  Receive Date: 20250211
  Receipt Date: 20250211
  Transmission Date: 20250409
  Serious: Yes (Hospitalization)
  Sender: AMERICAN REGENT
  Company Number: US-AMERICAN REGENT INC-2025000636

PATIENT
  Age: 4 Decade
  Sex: Female

DRUGS (1)
  1. EPINEPHRINE [Suspect]
     Active Substance: EPINEPHRINE
     Indication: Anaphylactic reaction
     Route: 030

REACTIONS (4)
  - Troponin I increased [Unknown]
  - Electrocardiogram ST segment abnormal [Unknown]
  - Ejection fraction decreased [Recovered/Resolved]
  - Arrhythmia supraventricular [Unknown]
